FAERS Safety Report 4338978-7 (Version None)
Quarter: 2004Q2

REPORT INFORMATION
  Report Type: 
  Country: None (occurrence: None)
  Receive Date: 20040409
  Receipt Date: 20040329
  Transmission Date: 20050107
  Serious: Yes (Death, Congenital Anomaly)
  Sender: FDA-Public Use
  Company Number: 04P-163-0250893-00

PATIENT
  Age: 1 Day
  Sex: Male

DRUGS (1)
  1. KALETRA [Suspect]

REACTIONS (3)
  - ATRIOVENTRICULAR CANAL [None]
  - DRUG EXPOSURE DURING PREGNANCY [None]
  - TRISOMY 21 [None]
